FAERS Safety Report 8138062-0 (Version None)
Quarter: 2012Q1

REPORT INFORMATION
  Report Type: 
  Country: None (occurrence: None)
  Receive Date: 20120213
  Receipt Date: 20120110
  Transmission Date: 20120608
  Serious: Yes (Other)
  Sender: FDA-Public Use
  Company Number: US-2012-10106

PATIENT
  Age: 13 Year
  Sex: Male

DRUGS (6)
  1. BUSULFAN [Suspect]
     Indication: STEM CELL TRANSPLANT
     Dosage: 0.8 MG/KG, Q6HR, INTRAVENOUS
     Route: 042
  2. METHOTREXATE [Concomitant]
  3. FLUDARABINE PHOSPHATE [Concomitant]
  4. ALEMTUZUMAB (ALEMTUZUMAB) [Concomitant]
  5. CYCLOSPORINE [Concomitant]
  6. CYCLOPHOSPHAMIDE [Concomitant]

REACTIONS (1)
  - AUTOIMMUNE THYROIDITIS [None]
